FAERS Safety Report 23101777 (Version 2)
Quarter: 2023Q4

REPORT INFORMATION
  Report Type: Report from Study
  Country: US (occurrence: US)
  Receive Date: 20231025
  Receipt Date: 20231031
  Transmission Date: 20240109
  Serious: Yes (Other)
  Sender: FDA-Public Use
  Company Number: US-BRISTOL-MYERS SQUIBB COMPANY-2023-149116

PATIENT
  Age: 84 Year
  Sex: Female
  Weight: 62.1 kg

DRUGS (7)
  1. ELIQUIS [Suspect]
     Active Substance: APIXABAN
     Indication: Atrial fibrillation
  2. TIKOSYN [Suspect]
     Active Substance: DOFETILIDE
     Indication: Atrial fibrillation
     Dosage: QUANTITY FOR 90 DAYS:180?3 REFILLS
     Route: 048
     Dates: start: 20230614
  3. TIKOSYN [Suspect]
     Active Substance: DOFETILIDE
     Route: 048
     Dates: start: 20230918
  4. TOPROL XL [Concomitant]
     Active Substance: METOPROLOL SUCCINATE
     Indication: Atrial fibrillation
  5. DUPIXENT [Concomitant]
     Active Substance: DUPILUMAB
     Indication: Atrial fibrillation
  6. METOPROLOL [Concomitant]
     Active Substance: METOPROLOL
     Indication: Hypertension
  7. NITROSTAT [Concomitant]
     Active Substance: NITROGLYCERIN
     Indication: Product used for unknown indication
     Dosage: DISSOLVE 1 TAB UNDER TONGUE EVERY 5 MINUTES AS NEEDED FOR PAIN
     Route: 060
     Dates: start: 20170809

REACTIONS (6)
  - Sinus node dysfunction [Unknown]
  - Atrial fibrillation [Unknown]
  - Lipid metabolism disorder [Unknown]
  - Dyspnoea [Unknown]
  - Amnesia [Unknown]
  - Cardiac disorder [Unknown]
